FAERS Safety Report 15378758 (Version 1)
Quarter: 2018Q3

REPORT INFORMATION
  Report Type: Spontaneous
  Country: US (occurrence: US)
  Receive Date: 20180906
  Receipt Date: 20180906
  Transmission Date: 20181010
  Serious: Yes (Disabling)
  Sender: FDA-Public Use
  Company Number: None

PATIENT
  Age: 65 Year
  Sex: Female
  Weight: 64.86 kg

DRUGS (7)
  1. AMLODOPINE [Concomitant]
     Active Substance: AMLODIPINE BESYLATE
  2. MAGNESIUM [Concomitant]
     Active Substance: MAGNESIUM
  3. CINAMON CAPSULES [Concomitant]
  4. HYDROCHLORITHIAZIDE [Concomitant]
     Active Substance: HYDROCHLOROTHIAZIDE
  5. FLAXSEED [Concomitant]
     Active Substance: FLAX SEED
  6. TRAZODONE [Suspect]
     Active Substance: TRAZODONE HYDROCHLORIDE
     Indication: INSOMNIA
     Dosage: ?          QUANTITY:1 PILL;OTHER FREQUENCY:1 AT BED TIME;?
     Route: 048
     Dates: start: 20180701, end: 20180820
  7. ESTRADIOL. [Concomitant]
     Active Substance: ESTRADIOL

REACTIONS (2)
  - Condition aggravated [None]
  - Rash [None]

NARRATIVE: CASE EVENT DATE: 20180730
